FAERS Safety Report 6992072-5 (Version None)
Quarter: 2010Q3

REPORT INFORMATION
  Report Type: 
  Country: None (occurrence: None)
  Receive Date: 20100917
  Receipt Date: 20100906
  Transmission Date: 20110219
  Serious: Yes (Other)
  Sender: FDA-Public Use
  Company Number: AU-BAYER-201038352GPV

PATIENT
  Sex: Female

DRUGS (1)
  1. MIRENA [Suspect]
     Indication: PRODUCT USED FOR UNKNOWN INDICATION
     Route: 015

REACTIONS (4)
  - ABORTION INDUCED [None]
  - DEVICE DISLOCATION [None]
  - INTRA-ABDOMINAL HAEMATOMA [None]
  - PREGNANCY WITH CONTRACEPTIVE DEVICE [None]
